FAERS Safety Report 24406153 (Version 1)
Quarter: 2024Q4

REPORT INFORMATION
  Report Type: Spontaneous
  Country: US (occurrence: US)
  Receive Date: 20241007
  Receipt Date: 20241007
  Transmission Date: 20250115
  Serious: Yes (Other)
  Sender: PFIZER
  Company Number: US-PFIZER INC-202400268195

PATIENT

DRUGS (1)
  1. OXBRYTA [Suspect]
     Active Substance: VOXELOTOR
     Dosage: UNK

REACTIONS (4)
  - Inappropriate schedule of product discontinuation [Unknown]
  - Rebound effect [Unknown]
  - Haemolysis [Unknown]
  - Haemoglobin decreased [Unknown]
